FAERS Safety Report 8838645 (Version 1)
Quarter: 2012Q4

REPORT INFORMATION
  Report Type: Report from Study
  Country: US (occurrence: US)
  Receive Date: 20121012
  Receipt Date: 20121012
  Transmission Date: 20130627
  Serious: No
  Sender: FDA-Public Use
  Company Number: US-009507513-1210USA001856

PATIENT
  Sex: Male

DRUGS (3)
  1. REBETOL [Suspect]
     Indication: HEPATITIS C
     Dosage: 1200 mg per day
     Route: 048
     Dates: start: 20120810
  2. VICTRELIS [Suspect]
     Indication: HEPATITIS C
     Dosage: three times daily
     Route: 048
     Dates: start: 20120907
  3. PEGINTERFERON ALFA-2A [Suspect]
     Indication: HEPATITIS C
     Dosage: 180 mg, qw
     Route: 058
     Dates: start: 20120810

REACTIONS (4)
  - Fatigue [Unknown]
  - Asthenia [Unknown]
  - Presyncope [Unknown]
  - Dyspnoea [Unknown]
